FAERS Safety Report 17146709 (Version 1)
Quarter: 2019Q4

REPORT INFORMATION
  Report Type: Report from Study
  Country: US (occurrence: US)
  Receive Date: 20191212
  Receipt Date: 20191212
  Transmission Date: 20200122
  Serious: Yes (Hospitalization)
  Sender: FDA-Public Use
  Company Number: US-ACTELION PHARMACEUTICALS LTD.-A-NJ2018-169066

PATIENT
  Sex: Female
  Weight: 83.9 kg

DRUGS (2)
  1. ADCIRCA [Concomitant]
     Active Substance: TADALAFIL
  2. OPSUMIT [Suspect]
     Active Substance: MACITENTAN
     Indication: PULMONARY ARTERIAL HYPERTENSION
     Dosage: 10 MG, QD
     Route: 048

REACTIONS (19)
  - Dyspnoea exertional [Unknown]
  - Diarrhoea [Unknown]
  - Condition aggravated [Unknown]
  - Loss of consciousness [Unknown]
  - Pulmonary arterial hypertension [Unknown]
  - Chest pain [Unknown]
  - Nausea [Unknown]
  - Fatigue [Unknown]
  - Product dose omission [Unknown]
  - Decreased appetite [Unknown]
  - Weight decreased [Unknown]
  - Asthenia [Unknown]
  - Productive cough [Unknown]
  - Hospitalisation [Unknown]
  - Pain in extremity [Unknown]
  - Dyspnoea [Unknown]
  - Fall [Unknown]
  - Nasopharyngitis [Unknown]
  - Oropharyngeal pain [Unknown]
